FAERS Safety Report 5951389-3 (Version None)
Quarter: 2008Q4

REPORT INFORMATION
  Report Type: 
  Country: None (occurrence: None)
  Receive Date: 20081113
  Receipt Date: 20081013
  Transmission Date: 20090506
  Serious: No
  Sender: FDA-Public Use
  Company Number: US-BAYER-200836119NA

PATIENT
  Sex: Female

DRUGS (3)
  1. YASMIN [Suspect]
     Indication: DRUG USE FOR UNKNOWN INDICATION
     Route: 048
     Dates: start: 20060101
  2. CELEBREX [Concomitant]
     Indication: SCIATICA
  3. NEURONTIN [Concomitant]
     Indication: SCIATICA

REACTIONS (1)
  - METRORRHAGIA [None]
